FAERS Safety Report 15937677 (Version 2)
Quarter: 2019Q3

REPORT INFORMATION
  Report Type: Spontaneous
  Country: US (occurrence: US)
  Receive Date: 20190208
  Receipt Date: 20190731
  Transmission Date: 20191004
  Serious: Yes (Other)
  Sender: FDA-Public Use
  Company Number: US-ASTRAZENECA-2019SE10565

PATIENT
  Sex: Male

DRUGS (35)
  1. LEVOFLOXACIN. [Concomitant]
     Active Substance: LEVOFLOXACIN
  2. DEXILANT [Suspect]
     Active Substance: DEXLANSOPRAZOLE
     Route: 065
     Dates: start: 2012, end: 2016
  3. DEXILANT [Suspect]
     Active Substance: DEXLANSOPRAZOLE
     Route: 065
     Dates: start: 2001
  4. DESLORATADINE. [Concomitant]
     Active Substance: DESLORATADINE
  5. CLINDAMYCIN. [Concomitant]
     Active Substance: CLINDAMYCIN
  6. PROMETHAZINE [Concomitant]
     Active Substance: PROMETHAZINE HYDROCHLORIDE
  7. SULFAMETHOXAZOLE [Concomitant]
     Active Substance: SULFAMETHOXAZOLE
  8. DESOXIMETASONE. [Concomitant]
     Active Substance: DESOXIMETASONE
  9. FENOFIBRATE. [Concomitant]
     Active Substance: FENOFIBRATE
  10. PRILOSEC [Suspect]
     Active Substance: OMEPRAZOLE MAGNESIUM
     Route: 048
     Dates: start: 2001
  11. PREVACID [Suspect]
     Active Substance: LANSOPRAZOLE
     Route: 065
     Dates: start: 2004
  12. BUPROPION. [Concomitant]
     Active Substance: BUPROPION
  13. TRAZODONE [Concomitant]
     Active Substance: TRAZODONE HYDROCHLORIDE
  14. AMOXICILLIN. [Concomitant]
     Active Substance: AMOXICILLIN
  15. PROPOXYPHENE. [Concomitant]
     Active Substance: PROPOXYPHENE
  16. VARENICLINE [Concomitant]
     Active Substance: VARENICLINE
  17. IPRATROPIUM [Concomitant]
     Active Substance: IPRATROPIUM
  18. NEXIUM [Suspect]
     Active Substance: ESOMEPRAZOLE MAGNESIUM
     Route: 048
     Dates: start: 2004, end: 2012
  19. NEXIUM [Suspect]
     Active Substance: ESOMEPRAZOLE MAGNESIUM
     Route: 048
     Dates: start: 2001
  20. HYDROCORTISONE. [Concomitant]
     Active Substance: HYDROCORTISONE
  21. OLMESARTAN [Concomitant]
     Active Substance: OLMESARTAN
  22. LIDOCAINE. [Concomitant]
     Active Substance: LIDOCAINE
  23. PREVACID [Suspect]
     Active Substance: LANSOPRAZOLE
     Route: 065
     Dates: start: 2001
  24. OXYCODONE [Concomitant]
     Active Substance: OXYCODONE
  25. SERTRALINE [Concomitant]
     Active Substance: SERTRALINE HYDROCHLORIDE
  26. ZANTAC [Concomitant]
     Active Substance: RANITIDINE HYDROCHLORIDE
  27. AZITHROMYCIN ANHYDROUS. [Concomitant]
     Active Substance: AZITHROMYCIN ANHYDROUS
  28. DICLOFENAC [Concomitant]
     Active Substance: DICLOFENAC
  29. CLARITHROMYCIN. [Concomitant]
     Active Substance: CLARITHROMYCIN
  30. PROCHLORPERAZINE. [Concomitant]
     Active Substance: PROCHLORPERAZINE
  31. MUPIROCIN. [Concomitant]
     Active Substance: MUPIROCIN
  32. METOPROLOL. [Concomitant]
     Active Substance: METOPROLOL
  33. ALPRAZOLAM. [Concomitant]
     Active Substance: ALPRAZOLAM
  34. ATORVASTATIN [Concomitant]
     Active Substance: ATORVASTATIN
  35. CEPHALEXIN. [Concomitant]
     Active Substance: CEPHALEXIN

REACTIONS (4)
  - Chronic kidney disease [Unknown]
  - Renal failure [Not Recovered/Not Resolved]
  - Rebound acid hypersecretion [Unknown]
  - Renal injury [Unknown]
